FAERS Safety Report 17846342 (Version 3)
Quarter: 2021Q1

REPORT INFORMATION
  Report Type: Spontaneous
  Country: JP (occurrence: JP)
  Receive Date: 20200601
  Receipt Date: 20210122
  Transmission Date: 20210419
  Serious: Yes (Other)
  Sender: FDA-Public Use
  Company Number: JP-009507513-2005JPN002069J

PATIENT
  Sex: Male

DRUGS (13)
  1. DESCOVY [Suspect]
     Active Substance: EMTRICITABINE\TENOFOVIR ALAFENAMIDE FUMARATE
     Indication: HIV INFECTION
     Dosage: 1 DOSAGE FORM/DAY
     Route: 048
     Dates: start: 20170515
  2. AMLODIPINE [Concomitant]
     Active Substance: AMLODIPINE BESYLATE
     Dosage: UNK
     Route: 048
     Dates: start: 20170612
  3. ISENTRESS [Suspect]
     Active Substance: RALTEGRAVIR POTASSIUM
     Indication: HIV INFECTION
     Dosage: 800 MILLIGRAM/DAILY
     Route: 048
     Dates: start: 20161018, end: 20181107
  4. CLARITHROMYCIN. [Concomitant]
     Active Substance: CLARITHROMYCIN
     Indication: OPPORTUNISTIC INFECTION PROPHYLAXIS
     Dosage: UNK
     Route: 065
     Dates: start: 20160923, end: 20171010
  5. VENETLIN [Concomitant]
     Active Substance: ALBUTEROL SULFATE
     Indication: PROPHYLAXIS
     Dosage: UNK
     Route: 065
     Dates: start: 20160930, end: 20180208
  6. MICARDIS [Concomitant]
     Active Substance: TELMISARTAN
     Dosage: UNK
     Route: 065
     Dates: start: 20161014, end: 20171011
  7. LANSOPRAZOLE OD [Concomitant]
     Active Substance: LANSOPRAZOLE
     Indication: PROPHYLAXIS
     Dosage: UNK
     Route: 048
     Dates: start: 20160828, end: 20191012
  8. BENAMBAX [Concomitant]
     Active Substance: PENTAMIDINE
     Indication: PROPHYLAXIS
     Dosage: UNK
     Route: 065
     Dates: start: 20160930, end: 20180208
  9. CELESTAMINE N [Concomitant]
     Active Substance: BETAMETHASONE
     Dosage: UNK
     Route: 048
     Dates: start: 20170116, end: 20171115
  10. ESANBUTOL [Concomitant]
     Active Substance: ETHAMBUTOL HYDROCHLORIDE
     Indication: PROPHYLAXIS
     Dosage: UNK
     Route: 065
     Dates: start: 20160923, end: 20171010
  11. TRAMCET [Concomitant]
     Active Substance: ACETAMINOPHEN\TRAMADOL
     Dosage: UNK
     Route: 048
     Dates: start: 20170612, end: 20180308
  12. MYCOBUTIN [Concomitant]
     Active Substance: RIFABUTIN
     Dosage: UNK
     Route: 065
     Dates: start: 20160929, end: 20171010
  13. OLOPATADINE HYDROCHLORIDE OD [Concomitant]
     Dosage: UNK
     Route: 048
     Dates: start: 20170116, end: 20180112

REACTIONS (3)
  - CD8 lymphocytes increased [Recovering/Resolving]
  - Fungal skin infection [Recovering/Resolving]
  - Uveitis [Recovering/Resolving]

NARRATIVE: CASE EVENT DATE: 20170911
